FAERS Safety Report 4349002-4 (Version None)
Quarter: 2004Q2

REPORT INFORMATION
  Report Type: 
  Country: None (occurrence: None)
  Receive Date: 20040428
  Receipt Date: 20040423
  Transmission Date: 20050107
  Serious: Yes (Hospitalization)
  Sender: FDA-Public Use
  Company Number: 200413148US

PATIENT
  Sex: 0

DRUGS (2)
  1. LANTUS [Suspect]
     Indication: DIABETES MELLITUS
     Dosage: DOSE: UNK
  2. INSULIN NOS [Concomitant]
     Indication: DIABETES MELLITUS
     Dosage: DOSE: UNK

REACTIONS (1)
  - HYPOGLYCAEMIA [None]
